FAERS Safety Report 8836221 (Version 1)
Quarter: 2012Q4

REPORT INFORMATION
  Report Type: 
  Country: US (occurrence: US)
  Receive Date: 20121011
  Receipt Date: 20121011
  Transmission Date: 20130627
  Serious: Yes (Other)
  Sender: FDA-Public Use
  Company Number: US-ROCHE-1138732

PATIENT
  Age: 11 Year
  Sex: Male
  Weight: 50.8 kg

DRUGS (4)
  1. NUTROPIN AQ [Suspect]
     Indication: HYPOPITUITARISM
     Route: 058
  2. SYNTHROID [Concomitant]
     Route: 048
  3. HYDROCORTISONE [Concomitant]
     Route: 065
  4. ADDERALL [Concomitant]

REACTIONS (1)
  - Convulsion [Unknown]
